APPROVED DRUG PRODUCT: TYZAVAN
Active Ingredient: VANCOMYCIN HYDROCHLORIDE
Strength: EQ 1.25GM BASE/250ML (EQ 5MG BASE/ML)
Dosage Form/Route: SOLUTION;INTRAVENOUS
Application: N211962 | Product #006
Applicant: HIKMA PHARMACEUTICALS USA INC
Approved: May 13, 2020 | RLD: Yes | RS: Yes | Type: RX

PATENTS:
Patent 11517609 | Expires: Nov 6, 2035
Patent 10188697 | Expires: Nov 6, 2035
Patent 10039804 | Expires: Nov 6, 2035
Patent 10849956 | Expires: Nov 6, 2035
Patent 11628200 | Expires: Nov 6, 2035
Patent 12161690 | Expires: Nov 6, 2035